FAERS Safety Report 16176479 (Version 2)
Quarter: 2019Q3

REPORT INFORMATION
  Report Type: Spontaneous
  Country: US (occurrence: US)
  Receive Date: 20190409
  Receipt Date: 20190719
  Transmission Date: 20191004
  Serious: Yes (Other)
  Sender: FDA-Public Use
  Company Number: US-GLAXOSMITHKLINE-US2019058751

PATIENT
  Age: 73 Year
  Sex: Female

DRUGS (3)
  1. CITRUCEL [Suspect]
     Active Substance: METHYLCELLULOSE (4000 MPA.S)
     Dosage: 2 DF, QD
  2. CITRUCEL [Suspect]
     Active Substance: METHYLCELLULOSE (4000 MPA.S)
     Dosage: 2 DF, QD
  3. CITRUCEL [Suspect]
     Active Substance: METHYLCELLULOSE (4000 MPA.S)
     Indication: CHANGE OF BOWEL HABIT
     Dosage: 2 DF, QD
     Route: 048
     Dates: start: 201903

REACTIONS (5)
  - Haematochezia [Unknown]
  - Incorrect product administration duration [Unknown]
  - Product complaint [Unknown]
  - Abdominal discomfort [Unknown]
  - Dyspepsia [Unknown]

NARRATIVE: CASE EVENT DATE: 20190329
